FAERS Safety Report 16409479 (Version 3)
Quarter: 2019Q2

REPORT INFORMATION
  Report Type: Spontaneous
  Country: US (occurrence: US)
  Receive Date: 20190610
  Receipt Date: 20190621
  Transmission Date: 20190711
  Serious: No
  Sender: FDA-Public Use
  Company Number: US-PFIZER INC-2019193291

PATIENT
  Age: 52 Year
  Sex: Male
  Weight: 82.54 kg

DRUGS (7)
  1. DILANTIN [Suspect]
     Active Substance: PHENYTOIN
     Dosage: 200 MG, 2X/DAY, [TAKE 2 CAPSULES BID (TWICE DAILY)]
     Route: 048
  2. DILANTIN [Suspect]
     Active Substance: PHENYTOIN
     Dosage: 100 MG, 4X/DAY
     Route: 048
  3. DILANTIN [Suspect]
     Active Substance: PHENYTOIN
     Dosage: 400 MG, ALTERNATE DAY, NEXT DAY QAM (EVERY MORNING)
     Route: 048
  4. DILANTIN [Suspect]
     Active Substance: PHENYTOIN
     Dosage: 200 MG, ALTERNATE DAY QHS (EVERY BEDTIME)
     Route: 048
  5. DILANTIN [Suspect]
     Active Substance: PHENYTOIN
     Dosage: 100MG, 3 CAPSULES TWICE A DAY 90
     Route: 048
  6. DILANTIN [Suspect]
     Active Substance: PHENYTOIN
     Indication: SEIZURE
     Dosage: 100 MG, ALTERNATE DAY QAM (EVERY MORNING)
     Route: 048
  7. DILANTIN [Suspect]
     Active Substance: PHENYTOIN
     Dosage: 200 MG, ALTERNATE DAY, NEXT DAY QHS (EVERY BEDTIME)
     Route: 048

REACTIONS (3)
  - Off label use [Unknown]
  - Drug ineffective [Unknown]
  - Product use issue [Unknown]
